FAERS Safety Report 5144525-2 (Version None)
Quarter: 2006Q4

REPORT INFORMATION
  Report Type: 
  Country: None (occurrence: None)
  Receive Date: 20061030
  Receipt Date: 20061017
  Transmission Date: 20070319
  Serious: Yes (Other)
  Sender: FDA-Public Use
  Company Number: 2006127726

PATIENT
  Sex: Female
  Weight: 54.4316 kg

DRUGS (2)
  1. GEODON [Suspect]
     Indication: BIPOLAR DISORDER
     Dosage: 160 MG
     Dates: start: 20061010, end: 20061016
  2. LITHIUM CARBONATE [Concomitant]

REACTIONS (8)
  - CHEST DISCOMFORT [None]
  - CHOKING [None]
  - FEELING ABNORMAL [None]
  - HEADACHE [None]
  - MUSCLE TWITCHING [None]
  - PANIC ATTACK [None]
  - SEDATION [None]
  - TACHYCARDIA [None]
